FAERS Safety Report 7334469-X (Version None)
Quarter: 2011Q1

REPORT INFORMATION
  Report Type: 
  Country: None (occurrence: None)
  Receive Date: 20110307
  Receipt Date: 20110228
  Transmission Date: 20110831
  Serious: Yes (Death, Hospitalization)
  Sender: FDA-Public Use
  Company Number: PHHY2011DE16509

PATIENT
  Sex: Female

DRUGS (9)
  1. ARCOXIA [Concomitant]
     Indication: PAIN
     Dosage: 120 MG, QD
     Route: 048
  2. VITAMIN B6 [Concomitant]
  3. ACETYLSALICYLIC ACID [Concomitant]
     Dosage: 100 MG, QD
  4. HALDOL [Concomitant]
     Dosage: 4 DRP, UNK
     Route: 048
     Dates: start: 20110203
  5. PANTOPRAZOLE [Concomitant]
     Dosage: 40 MG, QD
     Route: 048
  6. NOVALGIN [Concomitant]
     Indication: PAIN
     Dosage: 2X30 DROPS
     Route: 048
  7. EXELON [Suspect]
     Indication: VASCULAR DEMENTIA
     Dosage: 4.6 MG/ 24 HOUR
     Route: 062
     Dates: start: 20110120
  8. KALINOR [Concomitant]
     Dosage: 1 DF, UNK
  9. TAVOR [Concomitant]
     Route: 048

REACTIONS (14)
  - HEPATOMEGALY [None]
  - RENAL FAILURE [None]
  - C-REACTIVE PROTEIN INCREASED [None]
  - AGGRESSION [None]
  - GENERAL PHYSICAL HEALTH DETERIORATION [None]
  - CARDIAC FAILURE [None]
  - PLEURAL EFFUSION [None]
  - NEPHROGENIC ANAEMIA [None]
  - HYPOPHAGIA [None]
  - COAGULATION TEST ABNORMAL [None]
  - AORTIC ARTERIOSCLEROSIS [None]
  - SOMNOLENCE [None]
  - APATHY [None]
  - VOMITING [None]
